FAERS Safety Report 8425575-7 (Version None)
Quarter: 2012Q2

REPORT INFORMATION
  Report Type: 
  Country: None (occurrence: None)
  Receive Date: 20120611
  Receipt Date: 20120605
  Transmission Date: 20120825
  Serious: Yes (Other)
  Sender: FDA-Public Use
  Company Number: US-AMGEN-USASP2012017918

PATIENT
  Age: 60 Year
  Sex: Female

DRUGS (5)
  1. ENBREL [Suspect]
     Indication: RHEUMATOID ARTHRITIS
     Dosage: 50 MG, QWK
     Dates: start: 20120227
  2. AMLODIPINE [Concomitant]
     Dosage: UNK
  3. METHOTREXATE [Concomitant]
     Indication: RHEUMATOID ARTHRITIS
     Dosage: 25 MG, QWK
     Route: 058
     Dates: start: 20110701
  4. CLARINEX                           /01202601/ [Concomitant]
  5. OMEPRAZOLE [Concomitant]
     Dosage: UNK

REACTIONS (3)
  - INJECTION SITE RASH [None]
  - INJECTION SITE ERYTHEMA [None]
  - INJECTION SITE CELLULITIS [None]
